FAERS Safety Report 23460517 (Version 1)
Quarter: 2024Q1

REPORT INFORMATION
  Report Type: Spontaneous
  Country: DE (occurrence: DE)
  Receive Date: 20240131
  Receipt Date: 20240131
  Transmission Date: 20240410
  Serious: Yes (Other)
  Sender: FDA-Public Use
  Company Number: DE-AUROBINDO-AUR-APL-2018-002620

PATIENT
  Age: 63 Year
  Sex: Male
  Weight: 95 kg

DRUGS (21)
  1. LEUCOVORIN [Suspect]
     Active Substance: LEUCOVORIN\LEUCOVORIN CALCIUM
     Indication: Colorectal cancer metastatic
     Dosage: 560 MILLIGRAM
     Route: 065
     Dates: start: 20170523
  2. IRINOTECAN [Suspect]
     Active Substance: IRINOTECAN
     Indication: Colorectal cancer metastatic
     Dosage: 252 MILLIGRAM
     Route: 065
     Dates: start: 20170523
  3. IRINOTECAN [Suspect]
     Active Substance: IRINOTECAN
     Dosage: UNK
     Route: 065
  4. FLUOROURACIL [Suspect]
     Active Substance: FLUOROURACIL
     Indication: Colorectal cancer metastatic
     Dosage: 800 MILLIGRAM
     Route: 040
     Dates: start: 20170523
  5. FLUOROURACIL [Suspect]
     Active Substance: FLUOROURACIL
     Dosage: 1680 MILLIGRAM
     Route: 042
     Dates: start: 20170523
  6. FLUOROURACIL [Suspect]
     Active Substance: FLUOROURACIL
     Dosage: 560 MILLIGRAM
     Route: 040
     Dates: start: 20170606
  7. FLUOROURACIL [Suspect]
     Active Substance: FLUOROURACIL
     Dosage: 3360 MILLIGRAM
     Route: 042
     Dates: start: 20170606
  8. VECTIBIX [Suspect]
     Active Substance: PANITUMUMAB
     Indication: Colorectal cancer metastatic
     Dosage: 570 MILLIGRAM
     Route: 042
     Dates: start: 20170523
  9. VECTIBIX [Suspect]
     Active Substance: PANITUMUMAB
     Dosage: 284 MILLIGRAM
     Route: 042
     Dates: start: 20170619
  10. VECTIBIX [Suspect]
     Active Substance: PANITUMUMAB
     Dosage: 320 MILLIGRAM
     Route: 042
     Dates: start: 20180820
  11. AMLODIPINE BESYLATE [Concomitant]
     Active Substance: AMLODIPINE BESYLATE
     Indication: Hypertonia
     Dosage: 1 DF, ONCE A DAY
     Route: 048
  12. AMLODIPINE BESYLATE [Concomitant]
     Active Substance: AMLODIPINE BESYLATE
     Indication: Hypertension
     Dosage: UNK, ONCE A DAY
     Route: 048
  13. HYDROCHLOROTHIAZIDE [Concomitant]
     Active Substance: HYDROCHLOROTHIAZIDE
     Indication: Hypertonia
     Dosage: 1 DF, ONCE A DAY
     Route: 048
  14. HYDROCHLOROTHIAZIDE [Concomitant]
     Active Substance: HYDROCHLOROTHIAZIDE
     Indication: Hypertension
     Dosage: UNK UNK, ONCE A DAY
     Route: 048
  15. ATORVASTATIN [Concomitant]
     Active Substance: ATORVASTATIN
     Indication: Hypercholesterolaemia
     Dosage: 40 MILLIGRAM, ONCE A DAY
     Route: 048
  16. ASPIRIN [Concomitant]
     Active Substance: ASPIRIN
     Indication: Antiplatelet therapy
     Dosage: 100 MG, ONCE A DAY
     Route: 048
  17. BISOPROLOL [Concomitant]
     Active Substance: BISOPROLOL\BISOPROLOL FUMARATE
     Indication: Hypertonia
     Dosage: 5 MILLIGRAM, ONCE A DAY (5 MG, BID)
     Route: 048
  18. BISOPROLOL [Concomitant]
     Active Substance: BISOPROLOL\BISOPROLOL FUMARATE
     Indication: Hypertension
     Dosage: 10 MILLIGRAM, ONCE A DAY, 5 MILLIGRAM, BID
     Route: 048
  19. PANTOPRAZOLE SODIUM [Concomitant]
     Active Substance: PANTOPRAZOLE SODIUM
     Indication: Dyspepsia
     Dosage: 40 MG, ONCE A DAY
     Route: 048
  20. RAMIPRIL [Concomitant]
     Active Substance: RAMIPRIL
     Indication: Hypertonia
     Dosage: 5 MILLIGRAM, ONCE A DAY (5 MG, BID)
     Route: 048
  21. RAMIPRIL [Concomitant]
     Active Substance: RAMIPRIL
     Indication: Hypertension
     Dosage: 10 MILLIGRAM, ONCE A DAY, 5 MILLIGRAM, BID
     Route: 048

REACTIONS (3)
  - Leukopenia [Recovered/Resolved]
  - Pustule [Recovered/Resolved]
  - Off label use [Unknown]

NARRATIVE: CASE EVENT DATE: 20170606
